FAERS Safety Report 8898480 (Version 1)
Quarter: 2012Q4

REPORT INFORMATION
  Report Type: 
  Country: US (occurrence: US)
  Receive Date: 20121108
  Receipt Date: 20121108
  Transmission Date: 20130627
  Serious: Yes (Other)
  Sender: FDA-Public Use
  Company Number: US-AMGEN-USASP2012030154

PATIENT
  Sex: Male

DRUGS (15)
  1. ENBREL [Suspect]
     Indication: PRODUCT USED FOR UNKNOWN INDICATION
     Dosage: 50 mg, qwk
     Route: 058
  2. ALEVE [Concomitant]
     Dosage: 220 mg, UNK
  3. LEXAPRO [Concomitant]
     Dosage: 20 mg, UNK
  4. VITAMIN E                          /00110501/ [Concomitant]
     Dosage: 200 IU, UNK
  5. ZINC [Concomitant]
     Dosage: 30 mg, UNK
  6. MAGNESIUM [Concomitant]
     Dosage: 200 mg, UNK
  7. VITAMIN B12                        /00056201/ [Concomitant]
     Dosage: 100 mug, UNK
  8. FISH OIL [Concomitant]
     Dosage: UNK
  9. SAW PALMETTO                       /00833501/ [Concomitant]
     Dosage: UNK
  10. PROSTATE HEALTH WITH SAW PALMETTO AND ZINC [Concomitant]
     Dosage: UNK
  11. HYDROCODONE/APAP [Concomitant]
     Dosage: UNK mg, UNK
  12. NAPROSYN /00256201/ [Concomitant]
     Dosage: 250 mg, UNK
  13. VITAMIN B [Concomitant]
     Dosage: UNK
  14. LEVOFLOXACIN [Concomitant]
     Dosage: 250 mg, UNK
  15. METRONIDAZOL                       /00012501/ [Concomitant]
     Dosage: 250 mg, UNK

REACTIONS (2)
  - Diverticulitis [Unknown]
  - Urinary tract infection [Unknown]
